FAERS Safety Report 6570811-5 (Version None)
Quarter: 2010Q1

REPORT INFORMATION
  Report Type: 
  Country: None (occurrence: None)
  Receive Date: 20100204
  Receipt Date: 20100127
  Transmission Date: 20100710
  Serious: Yes (Other)
  Sender: FDA-Public Use
  Company Number: US-JNJFOC-20100200638

PATIENT
  Age: 83 Year
  Sex: Female
  Weight: 56.7 kg

DRUGS (3)
  1. RISPERDAL [Suspect]
     Indication: DEMENTIA
     Route: 048
  2. COUMADIN [Suspect]
     Indication: DRUG USE FOR UNKNOWN INDICATION
     Route: 048
  3. LIPITOR [Concomitant]
     Indication: DRUG USE FOR UNKNOWN INDICATION
     Route: 048

REACTIONS (5)
  - BRADYCARDIA [None]
  - FEELING ABNORMAL [None]
  - HAEMATOCRIT DECREASED [None]
  - HAEMORRHAGE [None]
  - RED BLOOD CELL COUNT DECREASED [None]
